FAERS Safety Report 5389696-8 (Version None)
Quarter: 2007Q3

REPORT INFORMATION
  Report Type: 
  Country: None (occurrence: None)
  Receive Date: 20070717
  Receipt Date: 20070710
  Transmission Date: 20080115
  Serious: Yes (Other)
  Sender: FDA-Public Use
  Company Number: JP-ELI_LILLY_AND_COMPANY-JP200707002523

PATIENT
  Age: 61 Year
  Sex: Male
  Weight: 54.85 kg

DRUGS (2)
  1. PEMETREXED [Suspect]
     Indication: PLEURAL MESOTHELIOMA MALIGNANT
     Dosage: UNK, OTHER
     Route: 042
     Dates: start: 20070209, end: 20070525
  2. CISPLATIN [Suspect]
     Indication: PLEURAL MESOTHELIOMA MALIGNANT
     Route: 042

REACTIONS (1)
  - INTERSTITIAL LUNG DISEASE [None]
